FAERS Safety Report 7109051-X (Version None)
Quarter: 2010Q4

REPORT INFORMATION
  Report Type: 
  Country: None (occurrence: None)
  Receive Date: 20101117
  Receipt Date: 20101110
  Transmission Date: 20110411
  Serious: Yes (Death, Other)
  Sender: FDA-Public Use
  Company Number: US-AMGEN-USASP2010000968

PATIENT

DRUGS (6)
  1. NPLATE [Suspect]
     Indication: PRODUCT USED FOR UNKNOWN INDICATION
     Dosage: 113 A?G, UNK
     Dates: start: 20100510, end: 20100511
  2. BLOOD AND RELATED PRODUCTS [Concomitant]
  3. ALBUMIN (HUMAN) [Concomitant]
  4. LASIX [Concomitant]
  5. THROMBIN LOCAL SOLUTION [Concomitant]
  6. NOVOSEVEN [Concomitant]

REACTIONS (3)
  - HAEMORRHAGE INTRACRANIAL [None]
  - KABUKI MAKE-UP SYNDROME [None]
  - PANCYTOPENIA [None]
